FAERS Safety Report 5264689-X (Version None)
Quarter: 2007Q1

REPORT INFORMATION
  Report Type: 
  Country: None (occurrence: None)
  Receive Date: 20061117
  Receipt Date: 20051005
  Transmission Date: 20070707
  Serious: Yes (Disabling)
  Sender: FDA-Public Use
  Company Number: US-JNJFOC-20051001474

PATIENT
  Age: 71 Year
  Sex: Female
  Weight: 108.8633 kg

DRUGS (11)
  1. LEVAQUIN [Suspect]
     Indication: URINARY TRACT INFECTION
     Dosage: ORAL
     Route: 048
     Dates: start: 20050916, end: 20050930
  2. DICYCLOMIN (DICYCLOVERINE HYDROCHLORIDE) [Concomitant]
  3. TRAZODONE HCL [Concomitant]
  4. NEURONTIN [Concomitant]
  5. LISINOPRIL [Concomitant]
  6. COUMADIN [Concomitant]
  7. DIGOXIN [Concomitant]
  8. TOPROL-XL [Concomitant]
  9. FUROSEMIDE [Concomitant]
  10. POTASSIUM (POTASSIUM) [Concomitant]
  11. ACIPHEX [Concomitant]

REACTIONS (2)
  - BONE PAIN [None]
  - THERAPEUTIC RESPONSE DELAYED [None]
